FAERS Safety Report 16177034 (Version 21)
Quarter: 2019Q3

REPORT INFORMATION
  Report Type: Report from Study
  Country: None (occurrence: IE)
  Receive Date: 20190409
  Receipt Date: 20190926
  Transmission Date: 20191004
  Serious: Yes (Life-Threatening, Hospitalization, Disabling, Congenital Anomaly, Other)
  Sender: FDA-Public Use
  Company Number: IE-ABBVIE-19S-229-2733583-00

PATIENT
  Age: 68 Year
  Sex: Male

DRUGS (23)
  1. SINEMET PLUS [Concomitant]
     Active Substance: CARBIDOPA\LEVODOPA
     Indication: PRODUCT USED FOR UNKNOWN INDICATION
  2. AZILECT [Concomitant]
     Active Substance: RASAGILINE MESYLATE
     Indication: PRODUCT USED FOR UNKNOWN INDICATION
  3. XANAX [Concomitant]
     Active Substance: ALPRAZOLAM
     Indication: PRODUCT USED FOR UNKNOWN INDICATION
     Dosage: PRN (AS REQUIRED)
     Route: 048
  4. DUODOPA [Suspect]
     Active Substance: CARBIDOPA\LEVODOPA
     Dosage: CD: 3.5ML/HR
     Route: 050
     Dates: start: 20190427, end: 20190511
  5. DUODOPA [Suspect]
     Active Substance: CARBIDOPA\LEVODOPA
     Dosage: CONTINUOUS ROUTE: 3.4MLS PER HR
     Route: 050
     Dates: start: 201907, end: 2019
  6. MIRAPEXIN [Concomitant]
     Active Substance: PRAMIPEXOLE
     Indication: PRODUCT USED FOR UNKNOWN INDICATION
  7. DUODOPA [Suspect]
     Active Substance: CARBIDOPA\LEVODOPA
     Dosage: 1 CASSETTE CD REDUCED TO 3.2ML/HR
     Route: 050
     Dates: start: 20190522, end: 20190525
  8. SINEMET [Concomitant]
     Active Substance: CARBIDOPA\LEVODOPA
     Indication: PRODUCT USED FOR UNKNOWN INDICATION
  9. DUODOPA [Suspect]
     Active Substance: CARBIDOPA\LEVODOPA
     Dosage: CD INCREASED TO 3.3ML/ HR
     Route: 050
     Dates: start: 20190407, end: 20190408
  10. DUODOPA [Suspect]
     Active Substance: CARBIDOPA\LEVODOPA
     Dosage: CD: 3.4ML/HR
     Route: 048
     Dates: start: 2019, end: 20190427
  11. DUODOPA [Suspect]
     Active Substance: CARBIDOPA\LEVODOPA
     Dosage: CD: 3.3MLS PER HR
     Route: 050
     Dates: start: 20190622
  12. DUODOPA [Suspect]
     Active Substance: CARBIDOPA\LEVODOPA
     Route: 050
     Dates: start: 20190923
  13. MIRAPEXIN [Concomitant]
     Active Substance: PRAMIPEXOLE
     Dates: start: 2019
  14. BISOPROLOL [Concomitant]
     Active Substance: BISOPROLOL
     Indication: PRODUCT USED FOR UNKNOWN INDICATION
  15. DIFENE [Concomitant]
     Active Substance: DICLOFENAC SODIUM
     Indication: PRODUCT USED FOR UNKNOWN INDICATION
     Dosage: PRN (AS REQUIRED)
     Route: 048
  16. DUODOPA [Suspect]
     Active Substance: CARBIDOPA\LEVODOPA
     Dosage: CD: 3.0MLS/HOUR. MD:11.5MLS. ED:1.0MLS PRN
     Route: 050
     Dates: start: 20190403, end: 20190407
  17. DUODOPA [Suspect]
     Active Substance: CARBIDOPA\LEVODOPA
     Dosage: CD: 3.4ML/HR
     Route: 050
     Dates: start: 20190408, end: 2019
  18. DUODOPA [Suspect]
     Active Substance: CARBIDOPA\LEVODOPA
     Dosage: 1 CASSETTE; CD INCREASED TO 3.3 ML/HR?CONTINUOUS
     Route: 050
     Dates: start: 20190525, end: 20190604
  19. DUODOPA [Suspect]
     Active Substance: CARBIDOPA\LEVODOPA
     Dosage: CD: 3.4MLS PER HR
     Route: 050
     Dates: start: 20190604, end: 20190622
  20. DUODOPA [Suspect]
     Active Substance: CARBIDOPA\LEVODOPA
     Route: 050
     Dates: start: 20190808, end: 2019
  21. DUODOPA [Suspect]
     Active Substance: CARBIDOPA\LEVODOPA
     Indication: PARKINSON^S DISEASE
     Dosage: DAY 1 TITRATION
     Route: 050
     Dates: start: 20190402, end: 20190403
  22. DUODOPA [Suspect]
     Active Substance: CARBIDOPA\LEVODOPA
     Dosage: CD: 3.4MLS/HR, 1 CASSETTE CONTINUOUS
     Route: 050
     Dates: start: 20190511, end: 20190522
  23. DUODOPA [Suspect]
     Active Substance: CARBIDOPA\LEVODOPA
     Dosage: CONTINUOUS ROUTE: 3.3MLS PER HR
     Route: 050
     Dates: end: 20190704

REACTIONS (32)
  - Inappropriate schedule of product administration [Recovered/Resolved]
  - Device used for unapproved schedule [Recovered/Resolved]
  - Asthenia [Recovered/Resolved]
  - On and off phenomenon [Recovered/Resolved]
  - Abdominal wall disorder [Recovering/Resolving]
  - Injury associated with device [Recovering/Resolving]
  - Sluggishness [Recovered/Resolved]
  - Insomnia [Recovered/Resolved]
  - Gastroenterostomy [Recovering/Resolving]
  - Large intestine perforation [Recovering/Resolving]
  - Oxygen saturation decreased [Recovering/Resolving]
  - Dyskinesia [Recovered/Resolved]
  - Intestinal obstruction [Recovered/Resolved]
  - Mobility decreased [Recovering/Resolving]
  - Therapeutic product effect increased [Recovered/Resolved]
  - Stoma site discharge [Recovering/Resolving]
  - Incorrect product administration duration [Recovered/Resolved]
  - Bradykinesia [Recovered/Resolved]
  - Psychological trauma [Not Recovered/Not Resolved]
  - Parkinson^s disease [Recovered/Resolved]
  - Stoma site discharge [Recovered/Resolved]
  - Faecaloma [Recovering/Resolving]
  - C-reactive protein increased [Recovering/Resolving]
  - Restless legs syndrome [Recovered/Resolved]
  - Poor quality sleep [Recovered/Resolved]
  - Weight decreased [Recovered/Resolved]
  - Hypertension [Recovering/Resolving]
  - Pneumoperitoneum [Recovering/Resolving]
  - Anxiety [Recovering/Resolving]
  - Medical device site discolouration [Recovering/Resolving]
  - Musculoskeletal stiffness [Recovering/Resolving]
  - Abdominal pain [Recovering/Resolving]

NARRATIVE: CASE EVENT DATE: 2019
